FAERS Safety Report 6774346-6 (Version None)
Quarter: 2010Q2

REPORT INFORMATION
  Report Type: 
  Country: None (occurrence: None)
  Receive Date: 20100617
  Receipt Date: 20100607
  Transmission Date: 20101027
  Serious: Yes (Hospitalization)
  Sender: FDA-Public Use
  Company Number: US-JNJFOC-20100604273

PATIENT
  Sex: Male
  Weight: 84.37 kg

DRUGS (12)
  1. IMODIUM [Suspect]
     Indication: DIARRHOEA
     Route: 048
  2. PEPCID AC [Suspect]
  3. PEPCID AC [Suspect]
     Indication: DRUG USE FOR UNKNOWN INDICATION
  4. IRINOTECAN [Suspect]
     Indication: COLON CANCER
     Route: 048
  5. CAPECITABINE [Suspect]
     Indication: COLON CANCER
     Route: 048
  6. COMPAZINE [Concomitant]
  7. MULTI-VITAMINS [Concomitant]
  8. IRON [Concomitant]
  9. GLUCOTROL XL [Concomitant]
  10. ANZEMET [Concomitant]
  11. THORAZINE [Concomitant]
  12. HYDROCODONE BITARTRATE [Concomitant]

REACTIONS (1)
  - INTESTINAL OBSTRUCTION [None]
